FAERS Safety Report 24677244 (Version 2)
Quarter: 2024Q4

REPORT INFORMATION
  Report Type: Spontaneous
  Country: JP (occurrence: JP)
  Receive Date: 20241129
  Receipt Date: 20241231
  Transmission Date: 20250114
  Serious: Yes (Hospitalization, Disabling, Other)
  Sender: AMGEN
  Company Number: JP-AMGEN-JPNSP2024231832

PATIENT
  Age: 33 Year
  Sex: Female
  Weight: 57 kg

DRUGS (6)
  1. OTEZLA [Suspect]
     Active Substance: APREMILAST
     Indication: Behcet^s syndrome
     Dosage: DOSAGE AS PER THE PACKAGE INSERT, QD
     Route: 048
     Dates: start: 20241018, end: 20241031
  2. OTEZLA [Suspect]
     Active Substance: APREMILAST
     Dosage: 60 MILLIGRAM, QD
     Route: 048
     Dates: start: 20241101, end: 20241102
  3. COLCHICINE [Suspect]
     Active Substance: COLCHICINE
     Indication: Behcet^s syndrome
     Dosage: 0.5 MILLIGRAM (2 TABLET), BID
     Route: 065
     Dates: start: 20240913, end: 20241105
  4. PREDNISOLONE [Concomitant]
     Active Substance: PREDNISOLONE
     Indication: Behcet^s syndrome
     Dosage: 30 MILLIGRAM, QD
     Route: 065
     Dates: start: 20241011
  5. Adalimumab bs daiichi sankyo [Concomitant]
     Indication: Behcet^s syndrome
     Dosage: 160 MG, Q2WK/80 MG, Q2WK
     Route: 058
     Dates: start: 20241024, end: 20241024
  6. RINVOQ [Concomitant]
     Active Substance: UPADACITINIB
     Indication: Behcet^s syndrome
     Dosage: 30 MILLIGRAM, QD
     Route: 065
     Dates: start: 20241030, end: 20241105

REACTIONS (5)
  - Ileal ulcer perforation [Unknown]
  - Peritonitis [Recovering/Resolving]
  - Liver function test increased [Recovering/Resolving]
  - Abdominal pain [Recovered/Resolved]
  - Diarrhoea [Recovered/Resolved]

NARRATIVE: CASE EVENT DATE: 20240901
